FAERS Safety Report 24405424 (Version 1)
Quarter: 2024Q4

REPORT INFORMATION
  Report Type: Spontaneous
  Country: US (occurrence: US)
  Receive Date: 20241007
  Receipt Date: 20241007
  Transmission Date: 20250115
  Serious: Yes (Other)
  Sender: INTRA-CELLULAR THERAPIES
  Company Number: US-INTRA-CELLULAR THERAPIES, INC.-2024ICT01552

PATIENT
  Sex: Female

DRUGS (1)
  1. CAPLYTA [Suspect]
     Active Substance: LUMATEPERONE
     Indication: Affective disorder
     Dosage: UNK

REACTIONS (8)
  - Hallucination [Not Recovered/Not Resolved]
  - Brain fog [Not Recovered/Not Resolved]
  - Amnesia [Not Recovered/Not Resolved]
  - Dissociation [Not Recovered/Not Resolved]
  - Cognitive disorder [Not Recovered/Not Resolved]
  - Hair growth abnormal [Not Recovered/Not Resolved]
  - Acne [Not Recovered/Not Resolved]
  - Off label use [Recovered/Resolved]
